FAERS Safety Report 18762990 (Version 1)
Quarter: 2021Q1

REPORT INFORMATION
  Report Type: Spontaneous
  Country: US (occurrence: US)
  Receive Date: 20210120
  Receipt Date: 20210120
  Transmission Date: 20210419
  Serious: Yes (Hospitalization)
  Sender: FDA-Public Use
  Company Number: None

PATIENT
  Age: 69 Year
  Sex: Male
  Weight: 78.4 kg

DRUGS (9)
  1. RISPERIDONE. [Concomitant]
     Active Substance: RISPERIDONE
     Dates: start: 20210111, end: 20210112
  2. ASPIRIN. [Concomitant]
     Active Substance: ASPIRIN
     Dates: start: 20210111, end: 20210118
  3. LEVETIRACETAM. [Concomitant]
     Active Substance: LEVETIRACETAM
     Dates: start: 20210107, end: 20210111
  4. ROSUVASTATIN. [Suspect]
     Active Substance: ROSUVASTATIN
     Indication: HYPERLIPIDAEMIA
     Route: 048
     Dates: start: 20210111, end: 20210112
  5. LACOSAMIDE. [Concomitant]
     Active Substance: LACOSAMIDE
     Dates: start: 20210106, end: 20210111
  6. AMLODIPINE [Concomitant]
     Active Substance: AMLODIPINE BESYLATE
     Dates: start: 20210109, end: 20210118
  7. DEXAMETHASONE. [Concomitant]
     Active Substance: DEXAMETHASONE
     Dates: start: 20210106, end: 20210111
  8. PANTOPRAZOLE [Concomitant]
     Active Substance: PANTOPRAZOLE
     Dates: start: 20210105, end: 20210111
  9. TAMSULOSIN [Concomitant]
     Active Substance: TAMSULOSIN
     Dates: start: 20210111, end: 20210118

REACTIONS (2)
  - COVID-19 [None]
  - Rhabdomyolysis [None]

NARRATIVE: CASE EVENT DATE: 20210114
